FAERS Safety Report 10982210 (Version 1)
Quarter: 2015Q2

REPORT INFORMATION
  Report Type: Spontaneous
  Country: ZA (occurrence: ZA)
  Receive Date: 20150403
  Receipt Date: 20150403
  Transmission Date: 20150821
  Serious: Yes (Hospitalization)
  Sender: FDA-Public Use
  Company Number: ZA-ROCHE-1558646

PATIENT
  Sex: Female

DRUGS (1)
  1. XELODA [Suspect]
     Active Substance: CAPECITABINE
     Indication: PRODUCT USED FOR UNKNOWN INDICATION
     Route: 048

REACTIONS (8)
  - Gastrointestinal pain [Unknown]
  - Mouth ulceration [Unknown]
  - Pharyngeal ulceration [Unknown]
  - Eye pain [Unknown]
  - Ocular hyperaemia [Unknown]
  - Feeding disorder [Unknown]
  - Skin exfoliation [Unknown]
  - Tremor [Unknown]
